FAERS Safety Report 7450071-3 (Version None)
Quarter: 2011Q2

REPORT INFORMATION
  Report Type: 
  Country: None (occurrence: None)
  Receive Date: 20110421
  Receipt Date: 20110408
  Transmission Date: 20111010
  Serious: Yes (Death, Hospitalization)
  Sender: FDA-Public Use
  Company Number: GB-ACCORD-008750

PATIENT
  Age: 18 Year
  Sex: Male

DRUGS (8)
  1. ERLOTINIB HYDROCHLORIDE [Suspect]
     Indication: LUNG NEOPLASM MALIGNANT
  2. PACLITAXEL [Suspect]
     Indication: LUNG NEOPLASM MALIGNANT
  3. ANALGESICS(ANALGESICS) [Concomitant]
  4. GEMCITABINE [Suspect]
     Indication: LUNG NEOPLASM MALIGNANT
     Dosage: 1250.00-MG/M2
  5. DOCETAXEL [Suspect]
     Indication: LUNG NEOPLASM MALIGNANT
  6. CARBOPLATIN [Suspect]
     Indication: LUNG NEOPLASM MALIGNANT
  7. VINORELBINE TARTRATE [Suspect]
     Indication: LUNG NEOPLASM MALIGNANT
  8. CISPLATIN [Suspect]
     Indication: LUNG NEOPLASM MALIGNANT
     Dosage: 80.00-MG/M2

REACTIONS (6)
  - DRUG HYPERSENSITIVITY [None]
  - OFF LABEL USE [None]
  - LUNG ADENOCARCINOMA [None]
  - NEOPLASM PROGRESSION [None]
  - HYPERTROPHIC OSTEOARTHROPATHY [None]
  - DISEASE PROGRESSION [None]
